FAERS Safety Report 9762782 (Version 1)
Quarter: 2013Q4

REPORT INFORMATION
  Report Type: Spontaneous
  Country: JP (occurrence: None)
  Receive Date: 20131213
  Receipt Date: 20131213
  Transmission Date: 20140711
  Serious: Yes (Other)
  Sender: FDA-Public Use
  Company Number: A1052937A

PATIENT
  Age: 76 Year
  Sex: Male

DRUGS (2)
  1. SERTRALINE (FORMULATION UNKNOWN) (GENERIC) (SERTRALINE) [Suspect]
     Indication: DEPRESSION
  2. LAMOTRIGINE (FORMULATION UNKNOWN) (GENERIC) (LAMOTRIGINE) [Suspect]
     Indication: DEPRESSION

REACTIONS (2)
  - Suicidal ideation [None]
  - Condition aggravated [None]
